FAERS Safety Report 6313420-5 (Version None)
Quarter: 2009Q3

REPORT INFORMATION
  Report Type: 
  Country: None (occurrence: None)
  Receive Date: 20090818
  Receipt Date: 20090811
  Transmission Date: 20100115
  Serious: Yes (Hospitalization)
  Sender: FDA-Public Use
  Company Number: FR-JNJFOC-20090803151

PATIENT
  Age: 66 Year
  Sex: Female

DRUGS (4)
  1. LEUSTATIN [Suspect]
     Indication: DRUG USE FOR UNKNOWN INDICATION
     Dosage: 10 MG/10 ML
     Route: 042
  2. ZYLORIC [Suspect]
     Indication: DRUG USE FOR UNKNOWN INDICATION
     Route: 048
  3. BACTRIM [Suspect]
     Indication: DRUG USE FOR UNKNOWN INDICATION
     Route: 048
  4. LEDERFOLINE [Concomitant]

REACTIONS (3)
  - AGRANULOCYTOSIS [None]
  - PYREXIA [None]
  - RASH MACULAR [None]
